FAERS Safety Report 25328699 (Version 2)
Quarter: 2025Q3

REPORT INFORMATION
  Report Type: Spontaneous
  Country: CN (occurrence: CN)
  Receive Date: 20250519
  Receipt Date: 20250803
  Transmission Date: 20251021
  Serious: Yes (Disabling)
  Sender: ALEXION PHARMACEUTICALS
  Company Number: CN-ASTRAZENECA-202505CHN009996CN

PATIENT
  Age: 61 Year
  Sex: Male
  Weight: 64.2 kg

DRUGS (1)
  1. DAPAGLIFLOZIN [Suspect]
     Active Substance: DAPAGLIFLOZIN
     Indication: Chronic kidney disease
     Dosage: 10 MILLIGRAM, QD
     Dates: start: 20250430, end: 20250508

REACTIONS (1)
  - Renal tubular injury [Unknown]

NARRATIVE: CASE EVENT DATE: 20250508
